FAERS Safety Report 8070438-2 (Version None)
Quarter: 2012Q1

REPORT INFORMATION
  Report Type: 
  Country: None (occurrence: None)
  Receive Date: 20120125
  Receipt Date: 20120116
  Transmission Date: 20120608
  Serious: Yes (Hospitalization)
  Sender: FDA-Public Use
  Company Number: JP-BRISTOL-MYERS SQUIBB COMPANY-16355158

PATIENT
  Age: 38 Year
  Sex: Male

DRUGS (8)
  1. LEVOFLOXACIN [Concomitant]
     Indication: CONJUNCTIVITIS
     Route: 047
     Dates: start: 20090401, end: 20100414
  2. TRUVADA [Concomitant]
     Indication: HIV INFECTION
     Dosage: 1DF=1TAB
     Route: 048
     Dates: start: 20110209
  3. ISENTRESS [Concomitant]
     Indication: HIV INFECTION
     Dosage: TABS
     Route: 048
     Dates: start: 20110209
  4. FLUOROMETHOLONE [Concomitant]
     Indication: CONJUNCTIVITIS
     Route: 047
     Dates: start: 20090507, end: 20100507
  5. VIDEX [Suspect]
     Indication: HIV INFECTION
     Route: 048
     Dates: start: 20040917, end: 20110208
  6. FAMOTIDINE [Concomitant]
     Indication: DUODENITIS
     Dosage: TABS
     Route: 048
     Dates: start: 20080825
  7. RETROVIR [Suspect]
     Indication: HIV INFECTION
     Route: 048
     Dates: start: 20040917, end: 20110208
  8. REYATAZ [Suspect]
     Indication: HIV INFECTION
     Route: 048
     Dates: start: 20040917, end: 20110208

REACTIONS (1)
  - ANGINA PECTORIS [None]
